FAERS Safety Report 26056809 (Version 1)
Quarter: 2025Q4

REPORT INFORMATION
  Report Type: Spontaneous
  Country: CN (occurrence: CN)
  Receive Date: 20251118
  Receipt Date: 20251118
  Transmission Date: 20260117
  Serious: Yes (Hospitalization, Other)
  Sender: AMGEN
  Company Number: CN-AMGEN-CHNSP2025080307

PATIENT
  Age: 66 Year
  Sex: Male

DRUGS (8)
  1. KYPROLIS [Suspect]
     Active Substance: CARFILZOMIB
     Indication: Plasma cell myeloma
     Dosage: UNK (20/27MG/M2 33.2/50MG D1-2, 45MG D8-9, D15-16)
     Route: 065
     Dates: start: 20241126, end: 20241127
  2. KYPROLIS [Suspect]
     Active Substance: CARFILZOMIB
     Dosage: 60 MILLIGRAM (D1-D2)
     Route: 065
     Dates: start: 20250203, end: 20250524
  3. KYPROLIS [Suspect]
     Active Substance: CARFILZOMIB
     Dosage: 90 MILLIGRAM, D1-D15
     Route: 065
     Dates: start: 20250610
  4. DEXAMETHASONE [Concomitant]
     Active Substance: DEXAMETHASONE
     Indication: Plasma cell myeloma
     Dosage: 20 MILLIGRAM (DL-2, D8-9, D15-16, D22-23 )
     Route: 065
     Dates: start: 20241126, end: 20250524
  5. LENALIDOMIDE [Concomitant]
     Active Substance: LENALIDOMIDE
     Indication: Plasma cell myeloma
     Dosage: 25 MILLIGRAM (D1-21)
     Route: 065
     Dates: start: 20241126, end: 20241127
  6. LENALIDOMIDE [Concomitant]
     Active Substance: LENALIDOMIDE
     Dosage: 25 MILLIGRAM (D1-D21)
     Route: 065
     Dates: start: 20250203, end: 20250524
  7. LENALIDOMIDE [Concomitant]
     Active Substance: LENALIDOMIDE
     Dosage: 25 MILLIGRAM (D1-D21)
     Route: 065
     Dates: start: 20250610
  8. DARATUMUMAB [Concomitant]
     Active Substance: DARATUMUMAB
     Indication: Plasma cell myeloma
     Dosage: 900 MILLIGRAM, D0, ONCE EVERY TWO WEEKS
     Route: 065
     Dates: start: 20250203, end: 20250524

REACTIONS (25)
  - Plasma cell myeloma [Unknown]
  - Leukopenia [Unknown]
  - Arteriosclerosis coronary artery [Unknown]
  - Cardiac amyloidosis [Unknown]
  - Pathological fracture [Unknown]
  - Mitral valve incompetence [Unknown]
  - Aortic arteriosclerosis [Unknown]
  - Cerebral arteriosclerosis [Unknown]
  - Tricuspid valve incompetence [Unknown]
  - Essential tremor [Unknown]
  - Tremor [Recovering/Resolving]
  - Musculoskeletal discomfort [Unknown]
  - Full blood count abnormal [Unknown]
  - Red blood cell sedimentation rate abnormal [Unknown]
  - Haematological infection [Unknown]
  - Chest discomfort [Recovering/Resolving]
  - Dizziness [Recovering/Resolving]
  - Marrow hyperplasia [Unknown]
  - White blood cell count decreased [Unknown]
  - Blood test abnormal [Unknown]
  - Vertigo [Unknown]
  - Resorption bone increased [Unknown]
  - Spinal osteoarthritis [Unknown]
  - Intervertebral disc protrusion [Unknown]
  - Liver function test abnormal [Unknown]

NARRATIVE: CASE EVENT DATE: 20241203
